FAERS Safety Report 5110912-1 (Version None)
Quarter: 2006Q3

REPORT INFORMATION
  Report Type: 
  Country: None (occurrence: None)
  Receive Date: 20060919
  Receipt Date: 20060906
  Transmission Date: 20061208
  Serious: Yes (Death)
  Sender: FDA-Public Use
  Company Number: 2006106956

PATIENT
  Age: 72 Year
  Sex: Female

DRUGS (2)
  1. CAMPTOSAR [Suspect]
     Indication: GASTRIC CANCER
     Dosage: 57 MG/M2, INTRAVENOUS
     Route: 042
     Dates: start: 20060822, end: 20060822
  2. CISPLATIN [Suspect]
     Indication: GASTRIC CANCER
     Dosage: 28.5 MG/M2, INTRAVENOUS
     Route: 042
     Dates: start: 20060822, end: 20060822

REACTIONS (12)
  - BLOOD CREATININE INCREASED [None]
  - BLOOD GLUCOSE DECREASED [None]
  - CARDIAC ARREST [None]
  - CONSTIPATION [None]
  - DEPRESSED LEVEL OF CONSCIOUSNESS [None]
  - DISSEMINATED INTRAVASCULAR COAGULATION [None]
  - LEUKOPENIA [None]
  - MALAISE [None]
  - ORAL INTAKE REDUCED [None]
  - PYREXIA [None]
  - SHOCK [None]
  - THROMBOCYTOPENIA [None]
